FAERS Safety Report 13981469 (Version 1)
Quarter: 2017Q3

REPORT INFORMATION
  Report Type: Spontaneous
  Country: US (occurrence: US)
  Receive Date: 20170916
  Receipt Date: 20170916
  Transmission Date: 20171128
  Serious: Yes (Hospitalization)
  Sender: FDA-Public Use
  Company Number: None

PATIENT
  Age: 83 Year
  Sex: Female
  Weight: 56.25 kg

DRUGS (16)
  1. MIRALAX [Concomitant]
     Active Substance: POLYETHYLENE GLYCOL 3350
  2. CLIF BUILDERS PROTEIN BAR [Concomitant]
  3. VIACTIVE (CALCIUM) [Concomitant]
     Active Substance: CALCIUM\VITAMIN D\VITAMIN K5
  4. GLUCERNA [Concomitant]
     Active Substance: AMINO ACIDS\DEXTROSE\ELECTROLYTES NOS\SOYBEAN OIL\VITAMINS
  5. PANTOPRAZOLE [Concomitant]
     Active Substance: PANTOPRAZOLE
  6. ALIGN (PROBIOTIC) [Concomitant]
  7. LOSARTAN. [Concomitant]
     Active Substance: LOSARTAN
  8. AMLODIPINE [Concomitant]
     Active Substance: AMLODIPINE BESYLATE
  9. CREON [Concomitant]
     Active Substance: PANCRELIPASE AMYLASE\PANCRELIPASE LIPASE\PANCRELIPASE PROTEASE
  10. ASPIRIN. [Concomitant]
     Active Substance: ASPIRIN
  11. MULTIPLE VITAMINS [Concomitant]
     Active Substance: VITAMINS
  12. RECLAST [Suspect]
     Active Substance: ZOLEDRONIC ACID
     Indication: OSTEOPOROSIS
     Dosage: QUANTITY:1 INJECTION(S);OTHER FREQUENCY:ANNUAL;?
     Route: 042
     Dates: start: 20170831, end: 20170831
  13. FERROUS SULFATE. [Concomitant]
     Active Substance: FERROUS SULFATE
  14. CLOPIDOGREL [Concomitant]
     Active Substance: CLOPIDOGREL BISULFATE
  15. CRESTOR [Concomitant]
     Active Substance: ROSUVASTATIN CALCIUM
  16. PRAMIPEXOLE. [Concomitant]
     Active Substance: PRAMIPEXOLE

REACTIONS (13)
  - Nausea [None]
  - Dyspnoea [None]
  - Abdominal pain [None]
  - Cough [None]
  - Chills [None]
  - Back pain [None]
  - Arthralgia [None]
  - Neck pain [None]
  - Pyrexia [None]
  - Fatigue [None]
  - Chest discomfort [None]
  - Middle insomnia [None]
  - Musculoskeletal pain [None]

NARRATIVE: CASE EVENT DATE: 20170912
